FAERS Safety Report 16564391 (Version 1)
Quarter: 2019Q3

REPORT INFORMATION
  Report Type: Report from Study
  Country: DE (occurrence: DE)
  Receive Date: 20190712
  Receipt Date: 20190712
  Transmission Date: 20191004
  Serious: Yes (Death, Other)
  Sender: FDA-Public Use
  Company Number: DE-ROCHE-2352209

PATIENT
  Sex: Female

DRUGS (4)
  1. ROACTEMRA [Suspect]
     Active Substance: TOCILIZUMAB
     Indication: RHEUMATOID ARTHRITIS
     Route: 065
     Dates: end: 20181112
  2. RAMIPRIL. [Concomitant]
     Active Substance: RAMIPRIL
  3. SALBUTAMOL [Concomitant]
     Active Substance: ALBUTEROL
  4. INSULIN [Concomitant]
     Active Substance: INSULIN NOS

REACTIONS (3)
  - Mechanical ileus [Fatal]
  - Breast cancer metastatic [Unknown]
  - Peritonitis [Fatal]
